FAERS Safety Report 5002430-6 (Version None)
Quarter: 2006Q2

REPORT INFORMATION
  Report Type: 
  Country: None (occurrence: None)
  Receive Date: 20060510
  Receipt Date: 20060428
  Transmission Date: 20061013
  Serious: Yes (Disabling, Other)
  Sender: FDA-Public Use
  Company Number: 2006058107

PATIENT
  Age: 38 Year
  Sex: Female

DRUGS (7)
  1. HYDROCORTISONE ACETATE [Suspect]
     Indication: RHEUMATOID ARTHRITIS
     Dosage: 20 MG (20 MG, 1 IN 1 D), ORAL
     Route: 048
     Dates: start: 20050124, end: 20051114
  2. METHOTREXATE [Suspect]
     Indication: RHEUMATOID ARTHRITIS
     Dosage: ORAL
     Route: 048
     Dates: start: 20050124, end: 20051114
  3. ENBREL [Suspect]
     Indication: RHEUMATOID ARTHRITIS
     Dosage: 25 MG (25 MG, 3 IN 1 WK), SUBCUTANEOUS
     Route: 058
     Dates: start: 20050124, end: 20051114
  4. PREDNISONE TAB [Suspect]
     Indication: RHEUMATOID ARTHRITIS
     Dosage: 7 MG (7 MG, 1 IN 1 D), ORAL
     Route: 048
     Dates: start: 20050124, end: 20051114
  5. OMEPRAZOLE [Suspect]
     Indication: ILL-DEFINED DISORDER
     Dosage: 20 MG (20 MG, 1 IN 1 D), ORAL
     Route: 048
     Dates: start: 20050124, end: 20051114
  6. ACTONEL [Suspect]
     Indication: OSTEOPOROSIS
     Dosage: 35 MG (35 MG, 1 IN 1 WK), ORAL
     Route: 048
     Dates: start: 20050124, end: 20051114
  7. ALL OTHER NON-THERAPEUTIC PRODUCTS [Concomitant]

REACTIONS (3)
  - ABORTION SPONTANEOUS [None]
  - AMENORRHOEA [None]
  - DRUG EXPOSURE DURING PREGNANCY [None]
